FAERS Safety Report 24678618 (Version 1)
Quarter: 2024Q4

REPORT INFORMATION
  Report Type: Spontaneous
  Country: FR (occurrence: IT)
  Receive Date: 20241129
  Receipt Date: 20241129
  Transmission Date: 20250115
  Serious: Yes (Hospitalization)
  Sender: AMGEN
  Company Number: FR-AMGEN-ITASP2024232462

PATIENT

DRUGS (1)
  1. ADALIMUMAB [Suspect]
     Active Substance: ADALIMUMAB
     Indication: Neurodermatitis
     Dosage: UNK
     Route: 065

REACTIONS (5)
  - Neurodermatitis [Unknown]
  - Skin disorder [Unknown]
  - Breast disorder [Unknown]
  - Cardiovascular disorder [Unknown]
  - Off label use [Unknown]
